FAERS Safety Report 5388903-5 (Version None)
Quarter: 2007Q3

REPORT INFORMATION
  Report Type: 
  Country: None (occurrence: None)
  Receive Date: 20070713
  Receipt Date: 20070713
  Transmission Date: 20080115
  Serious: No
  Sender: FDA-Public Use
  Company Number: None

PATIENT
  Sex: Male

DRUGS (2)
  1. LAMICTAL [Suspect]
     Indication: BIPOLAR DISORDER
     Dosage: 100MG DAILY ORAL
     Route: 048
     Dates: start: 20070417, end: 20070622
  2. LAMICTAL [Suspect]
     Indication: DEPRESSION
     Dosage: 100MG DAILY ORAL
     Route: 048
     Dates: start: 20070417, end: 20070622

REACTIONS (1)
  - SKIN DISCOLOURATION [None]
